FAERS Safety Report 5913385-1 (Version None)
Quarter: 2008Q4

REPORT INFORMATION
  Report Type: 
  Country: None (occurrence: None)
  Receive Date: 20081009
  Receipt Date: 20081002
  Transmission Date: 20090506
  Serious: Yes (Other)
  Sender: FDA-Public Use
  Company Number: PHHY2008BR23425

PATIENT
  Age: 82 Year
  Sex: Female
  Weight: 51 kg

DRUGS (1)
  1. EXFORGE [Suspect]
     Indication: HYPERTENSION
     Dosage: 1 DF (160 MG VALSARTAN/10 MG AMLODIPINE), DAILY
     Route: 048

REACTIONS (5)
  - ABASIA [None]
  - ABDOMINAL PAIN [None]
  - ARTERIAL OCCLUSIVE DISEASE [None]
  - CONDITION AGGRAVATED [None]
  - PAIN IN EXTREMITY [None]
